FAERS Safety Report 9223555 (Version 2)
Quarter: 2013Q2

REPORT INFORMATION
  Report Type: Spontaneous
  Country: US (occurrence: US)
  Receive Date: 20130410
  Receipt Date: 20130522
  Transmission Date: 20140414
  Serious: Yes (Other)
  Sender: FDA-Public Use
  Company Number: US-GLAXOSMITHKLINE-A1018424A

PATIENT
  Age: 5 Year
  Sex: Male

DRUGS (4)
  1. ADVAIR [Suspect]
     Indication: ASTHMA
     Dosage: 2PUFF TWICE PER DAY
     Route: 055
     Dates: start: 2013
  2. SINGULAR [Concomitant]
  3. QVAR [Concomitant]
  4. PROAIR HFA [Concomitant]

REACTIONS (3)
  - Dyspnoea [Unknown]
  - Inhalation therapy [Unknown]
  - Product quality issue [Unknown]
